FAERS Safety Report 6381104-3 (Version None)
Quarter: 2009Q3

REPORT INFORMATION
  Report Type: 
  Country: None (occurrence: None)
  Receive Date: 20090929
  Receipt Date: 20090924
  Transmission Date: 20100115
  Serious: Yes (Other)
  Sender: FDA-Public Use
  Company Number: BE-JNJFOC-20090903719

PATIENT
  Age: 40 Year
  Sex: Female

DRUGS (3)
  1. TOPAMAX [Suspect]
     Indication: MIGRAINE PROPHYLAXIS
     Route: 048
     Dates: start: 20090301
  2. IMURAN [Concomitant]
     Indication: CROHN'S DISEASE
     Route: 048
  3. ZOMIG [Concomitant]
     Indication: MIGRAINE
     Route: 065

REACTIONS (1)
  - UTERINE LEIOMYOMA [None]
